FAERS Safety Report 10663119 (Version 4)
Quarter: 2018Q1

REPORT INFORMATION
  Report Type: Report from Study
  Country: CA (occurrence: CA)
  Receive Date: 20141218
  Receipt Date: 20180213
  Transmission Date: 20180508
  Serious: Yes (Other)
  Sender: FDA-Public Use
  Company Number: CA-MERCK-1404USA012162

PATIENT
  Age: 48 Year
  Sex: Female

DRUGS (13)
  1. XELODA [Suspect]
     Active Substance: CAPECITABINE
     Indication: BREAST CANCER
     Dosage: UNK
     Route: 048
     Dates: start: 201111, end: 2013
  2. DEXAMETHASONE. [Concomitant]
     Active Substance: DEXAMETHASONE
     Dosage: UNK
     Route: 065
     Dates: start: 201401
  3. PREGABALIN. [Concomitant]
     Active Substance: PREGABALIN
     Dosage: UNK
  4. PERTUZUMAB. [Suspect]
     Active Substance: PERTUZUMAB
     Indication: HER-2 POSITIVE BREAST CANCER
     Dosage: 840 MG, 1 EVERY 3 WEEKS
     Route: 042
     Dates: start: 20140305, end: 20140515
  5. DOXYLAMINE SUCCINATE (+) ETAFEDRINE HYDROCHLORIDE (+) HYDROCODONE BITA [Concomitant]
     Dosage: UNK
     Route: 065
     Dates: start: 201401
  6. NASONEX [Suspect]
     Active Substance: MOMETASONE FUROATE
     Indication: PRODUCT USED FOR UNKNOWN INDICATION
     Dosage: UNK
     Route: 065
     Dates: start: 201403
  7. LAPATINIB DITOSYLATE [Concomitant]
     Active Substance: LAPATINIB DITOSYLATE
     Dosage: UNK
     Route: 065
     Dates: start: 2013
  8. TRASTUZUMAB. [Suspect]
     Active Substance: TRASTUZUMAB
     Indication: BREAST CANCER
     Dosage: UNK
     Route: 042
     Dates: start: 2012, end: 201310
  9. NYSTATIN. [Concomitant]
     Active Substance: NYSTATIN
     Dosage: UNK
     Route: 065
     Dates: start: 201401
  10. MEMANTINE. [Concomitant]
     Active Substance: MEMANTINE
     Dosage: UNK
     Route: 065
     Dates: start: 201309
  11. TIOTROPIUM BROMIDE [Concomitant]
     Active Substance: TIOTROPIUM BROMIDE
     Dosage: UNK
     Route: 065
  12. AROMASIN [Concomitant]
     Active Substance: EXEMESTANE
     Dosage: UNK
  13. ESOMEPRAZOLE [Concomitant]
     Active Substance: ESOMEPRAZOLE
     Dosage: UNK
     Route: 065
     Dates: start: 201309

REACTIONS (15)
  - Diarrhoea [Not Recovered/Not Resolved]
  - Cough [Not Recovered/Not Resolved]
  - Dyspnoea [Not Recovered/Not Resolved]
  - Disease progression [Unknown]
  - Haematocrit increased [Unknown]
  - Diarrhoea [Not Recovered/Not Resolved]
  - Red blood cell count increased [Unknown]
  - Neutrophil count increased [Unknown]
  - Urticaria [Unknown]
  - Nausea [Unknown]
  - Oral herpes [Unknown]
  - Epistaxis [Unknown]
  - Decreased appetite [Not Recovered/Not Resolved]
  - Drug ineffective [Unknown]
  - Lymphocyte count decreased [Unknown]

NARRATIVE: CASE EVENT DATE: 2014
